FAERS Safety Report 6881098-8 (Version None)
Quarter: 2010Q3

REPORT INFORMATION
  Report Type: 
  Country: None (occurrence: None)
  Receive Date: 20100727
  Receipt Date: 20100719
  Transmission Date: 20110219
  Serious: Yes (Hospitalization, Other)
  Sender: FDA-Public Use
  Company Number: US-BIOGENIDEC-2010BI019425

PATIENT
  Age: 69 Year
  Sex: Male
  Weight: 74 kg

DRUGS (1)
  1. AVONEX [Suspect]
     Indication: MULTIPLE SCLEROSIS
     Route: 030
     Dates: start: 20070101, end: 20100501

REACTIONS (11)
  - AGRAPHIA [None]
  - BACK PAIN [None]
  - CEREBROVASCULAR ACCIDENT [None]
  - DEMENTIA [None]
  - DERMATITIS [None]
  - EYE OPERATION [None]
  - FACIAL PAIN [None]
  - FAECAL INCONTINENCE [None]
  - HYPOAESTHESIA [None]
  - PROSTATE CANCER METASTATIC [None]
  - URINARY TRACT INFECTION [None]
